FAERS Safety Report 23016374 (Version 2)
Quarter: 2023Q4

REPORT INFORMATION
  Report Type: Report from Study
  Country: US (occurrence: US)
  Receive Date: 20231002
  Receipt Date: 20231122
  Transmission Date: 20240110
  Serious: Yes (Other)
  Sender: FDA-Public Use
  Company Number: US-ABBVIE-5427978

PATIENT
  Age: 29 Year
  Sex: Female

DRUGS (1)
  1. RINVOQ [Suspect]
     Active Substance: UPADACITINIB
     Indication: Dermatitis atopic
     Route: 048
     Dates: start: 20220414

REACTIONS (6)
  - Spinal operation [Not Recovered/Not Resolved]
  - Fungal infection [Not Recovered/Not Resolved]
  - Intervertebral disc protrusion [Unknown]
  - Spinal operation [Recovering/Resolving]
  - Fluid retention [Recovering/Resolving]
  - Back pain [Recovering/Resolving]

NARRATIVE: CASE EVENT DATE: 20230801
